FAERS Safety Report 7943172-4 (Version None)
Quarter: 2011Q4

REPORT INFORMATION
  Report Type: 
  Country: None (occurrence: None)
  Receive Date: 20111128
  Receipt Date: 20111116
  Transmission Date: 20120403
  Serious: Yes (Other)
  Sender: FDA-Public Use
  Company Number: PHHY2011JP100701

PATIENT
  Age: 60 Year
  Sex: Male

DRUGS (4)
  1. METHYLPREDNISOLONE [Concomitant]
     Indication: RENAL TRANSPLANT
  2. BASILIXIMAB [Suspect]
     Indication: RENAL TRANSPLANT
  3. MYCOPHENOLATE MOFETIL [Concomitant]
     Indication: RENAL TRANSPLANT
  4. TACROLIMUS [Concomitant]
     Indication: RENAL TRANSPLANT

REACTIONS (6)
  - BLOOD CREATININE INCREASED [None]
  - HAEMODIALYSIS [None]
  - URINE OUTPUT DECREASED [None]
  - URETERIC OBSTRUCTION [None]
  - HYDRONEPHROSIS [None]
  - CANDIDIASIS [None]
